FAERS Safety Report 4894266-1 (Version None)
Quarter: 2006Q1

REPORT INFORMATION
  Report Type: 
  Country: None (occurrence: None)
  Receive Date: 20060127
  Receipt Date: 20031008
  Transmission Date: 20060701
  Serious: Yes (Other)
  Sender: FDA-Public Use
  Company Number: US-GLAXOSMITHKLINE-A0429805A

PATIENT
  Age: 71 Year
  Sex: Female
  Weight: 86.8 kg

DRUGS (6)
  1. BUPROPION [Suspect]
     Indication: DEPRESSION
     Dosage: 75MG SEE DOSAGE TEXT
     Route: 048
     Dates: start: 20030630, end: 20030710
  2. LUVOX [Concomitant]
     Dosage: 150MG PER DAY
  3. FOSAMAX [Concomitant]
  4. LASIX [Concomitant]
  5. LIPITOR [Concomitant]
  6. ASPIRIN [Concomitant]

REACTIONS (2)
  - RASH MACULO-PAPULAR [None]
  - STEVENS-JOHNSON SYNDROME [None]
